FAERS Safety Report 25310211 (Version 1)
Quarter: 2025Q2

REPORT INFORMATION
  Report Type: Spontaneous
  Country: SI (occurrence: SI)
  Receive Date: 20250514
  Receipt Date: 20250514
  Transmission Date: 20250716
  Serious: Yes (Other)
  Sender: ACCORD
  Company Number: None

PATIENT
  Age: 52 Year
  Sex: Female

DRUGS (11)
  1. IRINOTECAN [Suspect]
     Active Substance: IRINOTECAN
     Indication: Pancreatic carcinoma
     Dates: start: 20240226, end: 20250121
  2. PANTOPRAZOLE SODIUM [Concomitant]
     Active Substance: PANTOPRAZOLE SODIUM
     Dosage: 40 MG IN THE MORNING
  3. CREON [Concomitant]
     Active Substance: PANCRELIPASE AMYLASE\PANCRELIPASE LIPASE\PANCRELIPASE PROTEASE
  4. ZYPREXA [Concomitant]
     Active Substance: OLANZAPINE
     Indication: Nausea
  5. KYTRIL [Concomitant]
     Active Substance: GRANISETRON HYDROCHLORIDE
     Dosage: AT NOON
  6. APREPITANT [Concomitant]
     Active Substance: APREPITANT
     Dosage: STRENGTH: 125 MG AND 80 MG DOSE: AT NOON
  7. FILGRASTIM [Concomitant]
     Active Substance: FILGRASTIM
     Dosage: STRENGTH: 48 MU/0.5 ML
  8. ELIQUIS [Concomitant]
     Active Substance: APIXABAN
     Dosage: 1 TABLET EVERY 12 HOURS
  9. SYMBICORT [Concomitant]
     Active Substance: BUDESONIDE\FORMOTEROL FUMARATE DIHYDRATE
  10. OXALIPLATIN [Concomitant]
     Active Substance: OXALIPLATIN
     Indication: Chemotherapy
  11. FLUOROURACIL [Concomitant]
     Active Substance: FLUOROURACIL
     Indication: Chemotherapy

REACTIONS (2)
  - Anticholinergic syndrome [Unknown]
  - Infusion related reaction [Recovered/Resolved]

NARRATIVE: CASE EVENT DATE: 20250121
